FAERS Safety Report 11072654 (Version 2)
Quarter: 2021Q3

REPORT INFORMATION
  Report Type: Spontaneous
  Country: DE (occurrence: DE)
  Receive Date: 20150428
  Receipt Date: 20210817
  Transmission Date: 20211014
  Serious: Yes (Life-Threatening, Hospitalization)
  Sender: FDA-Public Use
  Company Number: DE-AUROBINDO-AUR-APL-2015-03570

PATIENT
  Age: 47 Year
  Sex: Male
  Weight: 68 kg

DRUGS (5)
  1. OXYGESIC AKUT [Suspect]
     Active Substance: OXYCODONE
     Indication: TRIGEMINAL NEURALGIA
     Dosage: UNK
     Route: 048
  2. GABAPENTIN. [Suspect]
     Active Substance: GABAPENTIN
     Indication: TRIGEMINAL NEURALGIA
     Dosage: UNK
     Route: 048
  3. OXCARBAZEPINE. [Suspect]
     Active Substance: OXCARBAZEPINE
     Indication: TRIGEMINAL NEURALGIA
     Dosage: 900 MG, TWO TIMES A DAY
     Route: 048
  4. AMINEURIN [Suspect]
     Active Substance: AMITRIPTYLINE HYDROCHLORIDE
     Indication: TRIGEMINAL NEURALGIA
     Dosage: UNK
     Route: 048
  5. OXYCODONE [Suspect]
     Active Substance: OXYCODONE
     Indication: TRIGEMINAL NEURALGIA
     Dosage: 140 MG, ONCE A DAY
     Route: 048

REACTIONS (3)
  - Road traffic accident [Unknown]
  - Loss of consciousness [Unknown]
  - Drug level increased [Unknown]

NARRATIVE: CASE EVENT DATE: 20140308
